FAERS Safety Report 9776732 (Version 1)
Quarter: 2013Q4

REPORT INFORMATION
  Report Type: Spontaneous
  Country: US (occurrence: US)
  Receive Date: 20131220
  Receipt Date: 20131220
  Transmission Date: 20140711
  Serious: Yes (Hospitalization)
  Sender: FDA-Public Use
  Company Number: PHHY2013US147497

PATIENT
  Age: 68 Year
  Sex: Female

DRUGS (2)
  1. CIPROFLOXACIN [Suspect]
     Indication: URINARY TRACT INFECTION
     Dosage: 500 MG, BID
     Route: 048
     Dates: start: 2008
  2. CIPROFLOXACIN [Suspect]
     Dosage: 500 MG Q12H
     Route: 048
     Dates: start: 2012

REACTIONS (6)
  - Inappropriate antidiuretic hormone secretion [Recovered/Resolved]
  - Hyponatraemia [Recovered/Resolved]
  - Fatigue [Unknown]
  - Nausea [Unknown]
  - Vomiting [Unknown]
  - Asthenia [Unknown]
